FAERS Safety Report 6262532-3 (Version None)
Quarter: 2009Q3

REPORT INFORMATION
  Report Type: 
  Country: None (occurrence: None)
  Receive Date: 20090709
  Receipt Date: 20090701
  Transmission Date: 20100115
  Serious: Yes (Hospitalization, Other)
  Sender: FDA-Public Use
  Company Number: KR-ELI_LILLY_AND_COMPANY-KR200907000312

PATIENT
  Age: 76 Year
  Sex: Female

DRUGS (2)
  1. HUMALOG MIX 75/25 [Suspect]
     Indication: TYPE 2 DIABETES MELLITUS
     Dosage: 60 IU, 2/D
     Route: 058
     Dates: start: 20090520
  2. ANTIHYPERTENSIVES [Concomitant]

REACTIONS (5)
  - FALL [None]
  - HEADACHE [None]
  - SURGERY [None]
  - TENDON INJURY [None]
  - VOMITING [None]
